FAERS Safety Report 7703469-X (Version None)
Quarter: 2011Q3

REPORT INFORMATION
  Report Type: 
  Country: None (occurrence: None)
  Receive Date: 20110823
  Receipt Date: 20110818
  Transmission Date: 20111222
  Serious: Yes (Hospitalization)
  Sender: FDA-Public Use
  Company Number: FR-SANOFI-AVENTIS-2011SA052726

PATIENT
  Age: 53 Year
  Sex: Male

DRUGS (6)
  1. DEPAKOTE [Suspect]
  2. MIRTAZAPINE [Suspect]
  3. CLONAZEPAM [Suspect]
  4. ZOLPIDEM [Suspect]
  5. EFFEXOR [Suspect]
  6. NALTREXONE HYDROCHLORIDE [Suspect]

REACTIONS (1)
  - HEPATITIS CHOLESTATIC [None]
